FAERS Safety Report 9305596 (Version 2)
Quarter: 2013Q2

REPORT INFORMATION
  Report Type: Report from Study
  Country: US (occurrence: US)
  Receive Date: 20130523
  Receipt Date: 20130523
  Transmission Date: 20140414
  Serious: Yes (Death, Hospitalization)
  Sender: FDA-Public Use
  Company Number: US-ROCHE-1192852

PATIENT
  Age: 67 Year
  Sex: Female
  Weight: 70.99 kg

DRUGS (3)
  1. BEVACIZUMAB [Suspect]
     Indication: GLIOBLASTOMA MULTIFORME
     Dosage: LAST TOTAL DOSE ADMINISTERED WAS 700 MG: 01/FEB/2013
     Route: 042
     Dates: start: 20121102
  2. DASATINIB [Suspect]
     Indication: GLIOBLASTOMA MULTIFORME
     Dosage: LAST TOTAL DOSE ADMINISTERED ON 09/FEB/2013
     Route: 048
     Dates: start: 20121102
  3. DASATINIB [Suspect]
     Route: 048
     Dates: start: 20130201

REACTIONS (6)
  - Sepsis [Fatal]
  - Stomatitis [Recovered/Resolved with Sequelae]
  - Confusional state [Unknown]
  - Urinary tract infection [Unknown]
  - Atrial fibrillation [Unknown]
  - Dysphagia [None]
